FAERS Safety Report 15849256 (Version 2)
Quarter: 2019Q1

REPORT INFORMATION
  Report Type: Report from Study
  Country: HN (occurrence: HN)
  Receive Date: 20190121
  Receipt Date: 20190205
  Transmission Date: 20190417
  Serious: Yes (Hospitalization)
  Sender: FDA-Public Use
  Company Number: HN-SA-2019SA011659

PATIENT
  Age: 74 Year

DRUGS (1)
  1. INSULIN GLARGINE [Suspect]
     Active Substance: INSULIN GLARGINE
     Indication: DIABETES MELLITUS
     Dosage: 18 IU, QD
     Route: 058
     Dates: start: 201701

REACTIONS (3)
  - Urinary tract infection [Recovered/Resolved]
  - Skin ulcer [Recovering/Resolving]
  - Gastric ulcer [Recovering/Resolving]
